FAERS Safety Report 16689111 (Version 2)
Quarter: 2019Q3

REPORT INFORMATION
  Report Type: Report from Study
  Country: US (occurrence: US)
  Receive Date: 20190809
  Receipt Date: 20190919
  Transmission Date: 20191004
  Serious: Yes (Death)
  Sender: FDA-Public Use
  Company Number: US-TAIHO ONCOLOGY  INC-EU-2019-02625

PATIENT
  Sex: Male

DRUGS (13)
  1. COLCHICINE. [Concomitant]
     Active Substance: COLCHICINE
     Dosage: NI
  2. GABAPENTIN. [Concomitant]
     Active Substance: GABAPENTIN
     Dosage: NI
  3. LOSARTAN. [Concomitant]
     Active Substance: LOSARTAN
     Dosage: NI
  4. CARVEDILOL. [Concomitant]
     Active Substance: CARVEDILOL
     Route: 048
  5. HYDRALAZINE [Concomitant]
     Active Substance: HYDRALAZINE HYDROCHLORIDE
     Dosage: NI
  6. FLOMAX [Concomitant]
     Active Substance: TAMSULOSIN HYDROCHLORIDE
     Dosage: NI
  7. ALLOPURINOL. [Concomitant]
     Active Substance: ALLOPURINOL
     Dosage: NI
  8. LONSURF [Suspect]
     Active Substance: TIPIRACIL HYDROCHLORIDE\TRIFLURIDINE
     Indication: COLON CANCER
     Dosage: CYCLE 1. THE PATIENT ONLY TOOK 1 DOSE.
     Route: 048
     Dates: start: 20190612, end: 20190617
  9. MIDODRINE [Concomitant]
     Active Substance: MIDODRINE
     Dates: start: 20190615
  10. VITAMIN B12 [Concomitant]
     Active Substance: CYANOCOBALAMIN
     Dosage: NI
  11. LIPITOR [Concomitant]
     Active Substance: ATORVASTATIN CALCIUM
     Dosage: NI
  12. FOLIC ACID. [Concomitant]
     Active Substance: FOLIC ACID
     Dosage: NI
  13. CALCIUM [Concomitant]
     Active Substance: CALCIUM
     Dosage: NI

REACTIONS (5)
  - Obesity [Fatal]
  - Glaucoma [Fatal]
  - Colorectal cancer metastatic [Fatal]
  - End stage renal disease [Fatal]
  - Cardiac failure congestive [Fatal]

NARRATIVE: CASE EVENT DATE: 2019
